FAERS Safety Report 8446563-0 (Version None)
Quarter: 2012Q2

REPORT INFORMATION
  Report Type: 
  Country: None (occurrence: None)
  Receive Date: 20120618
  Receipt Date: 20110524
  Transmission Date: 20120825
  Serious: Yes (Disabling)
  Sender: FDA-Public Use
  Company Number: PHHY2011TR116914

PATIENT
  Age: 85 Year
  Sex: Male

DRUGS (3)
  1. ESCITALOPRAM OXALATE [Concomitant]
  2. EXELON [Suspect]
  3. MIRTAZAPINE [Concomitant]

REACTIONS (2)
  - BLINDNESS [None]
  - GENERAL PHYSICAL HEALTH DETERIORATION [None]
